FAERS Safety Report 23430509 (Version 3)
Quarter: 2025Q1

REPORT INFORMATION
  Report Type: Report from Study
  Country: US (occurrence: US)
  Receive Date: 20240123
  Receipt Date: 20250212
  Transmission Date: 20250409
  Serious: Yes (Other)
  Sender: ALEXION PHARMACEUTICALS
  Company Number: US-ALXN-202401USA001226US

PATIENT

DRUGS (1)
  1. STRENSIQ [Suspect]
     Active Substance: ASFOTASE ALFA
     Route: 065

REACTIONS (4)
  - Vitamin B6 increased [Unknown]
  - Hyperhidrosis [Unknown]
  - Arthropathy [Recovering/Resolving]
  - Muscle disorder [Recovering/Resolving]
